FAERS Safety Report 5422100-X (Version None)
Quarter: 2007Q3

REPORT INFORMATION
  Report Type: 
  Country: None (occurrence: None)
  Receive Date: 20070821
  Receipt Date: 20070821
  Transmission Date: 20080115
  Serious: Yes (Hospitalization, Other)
  Sender: FDA-Public Use
  Company Number: None

PATIENT
  Sex: Female
  Weight: 88.4514 kg

DRUGS (6)
  1. TOPAMAX [Suspect]
     Indication: HEADACHE
     Dosage: 25MG BID PO
     Route: 048
     Dates: start: 20070421, end: 20070429
  2. MIRENA [Concomitant]
  3. MULTI-VITAMIN [Concomitant]
  4. VITAMIN B COMPLEX CAP [Concomitant]
  5. ASCORBIC ACID [Concomitant]
  6. CALCIUM [Concomitant]

REACTIONS (7)
  - ADVERSE DRUG REACTION [None]
  - BLINDNESS TRANSIENT [None]
  - EYE PAIN [None]
  - HAEMORRHAGE INTRACRANIAL [None]
  - MYOPIA [None]
  - VISION BLURRED [None]
  - VISUAL DISTURBANCE [None]
